FAERS Safety Report 17828354 (Version 3)
Quarter: 2020Q2

REPORT INFORMATION
  Report Type: Report from Study
  Country: JP (occurrence: JP)
  Receive Date: 20200527
  Receipt Date: 20200624
  Transmission Date: 20200714
  Serious: Yes (Hospitalization)
  Sender: FDA-Public Use
  Company Number: JP-EISAI MEDICAL RESEARCH-EC-2020-074935

PATIENT
  Age: 90 Year
  Sex: Male
  Weight: 51 kg

DRUGS (5)
  1. LENVATINIB [Suspect]
     Active Substance: LENVATINIB
     Indication: HEPATOCELLULAR CARCINOMA
     Route: 048
     Dates: start: 20200408, end: 20200424
  2. BELSOMRA [Concomitant]
     Active Substance: SUVOREXANT
     Indication: INSOMNIA
     Route: 048
  3. LENVATINIB [Suspect]
     Active Substance: LENVATINIB
     Route: 048
     Dates: start: 20200502, end: 20200516
  4. THYRADIN-S [Concomitant]
     Active Substance: LEVOTHYROXINE
     Indication: HYPOTHYROIDISM
     Route: 048
  5. LENVATINIB [Suspect]
     Active Substance: LENVATINIB
     Route: 048
     Dates: start: 20200616

REACTIONS (1)
  - Decreased appetite [Recovered/Resolved]

NARRATIVE: CASE EVENT DATE: 20200512
